FAERS Safety Report 8100276-3 (Version None)
Quarter: 2012Q1

REPORT INFORMATION
  Report Type: 
  Country: None (occurrence: None)
  Receive Date: 20120129
  Receipt Date: 20111117
  Transmission Date: 20120608
  Serious: No
  Sender: FDA-Public Use
  Company Number: US-ABBOTT-11P-163-0875340-00

PATIENT
  Age: 50 Year
  Sex: Male

DRUGS (3)
  1. OINTMENTS FOR SKIN [Concomitant]
     Indication: SKIN DISORDER
  2. HUMIRA [Suspect]
     Indication: PSORIASIS
     Dates: start: 20110809
  3. NAPROXEN [Concomitant]
     Indication: PRODUCT USED FOR UNKNOWN INDICATION

REACTIONS (3)
  - SKIN EXFOLIATION [None]
  - DRY SKIN [None]
  - PSORIASIS [None]
